FAERS Safety Report 18416360 (Version 2)
Quarter: 2020Q4

REPORT INFORMATION
  Report Type: Spontaneous
  Country: CN (occurrence: CN)
  Receive Date: 20201022
  Receipt Date: 20201028
  Transmission Date: 20210114
  Serious: Yes (Other)
  Sender: FDA-Public Use
  Company Number: CN-ASTRAZENECA-2020SF36025

PATIENT
  Age: 20 Year
  Sex: Male

DRUGS (7)
  1. ASIMEI [Concomitant]
     Indication: COUGH
     Dosage: TWICE A DAY, 2 TABLETS AT A TIME
     Dates: start: 202008
  2. SYMBICORT [Suspect]
     Active Substance: BUDESONIDE\FORMOTEROL FUMARATE DIHYDRATE
     Indication: ASTHMA
     Dosage: UNKNOWN UNKNOWN
     Route: 055
     Dates: start: 2019
  3. SINGULAIR [Concomitant]
     Active Substance: MONTELUKAST SODIUM
     Indication: COUGH
     Dosage: AFTER OCTOBER 6, TOOK ONE TABLET EVERY OTHER DAY
     Route: 048
  4. SINGULAIR [Concomitant]
     Active Substance: MONTELUKAST SODIUM
     Indication: COUGH
     Route: 048
     Dates: start: 202008, end: 202009
  5. SYMBICORT [Suspect]
     Active Substance: BUDESONIDE\FORMOTEROL FUMARATE DIHYDRATE
     Indication: ASTHMA
     Dosage: (160 UG PLUS 4.5 UG), TWO TIMES A DAY ONCE IN THE MORNING AND IN THE EVENING UNKNOWN
     Route: 055
     Dates: start: 202008, end: 20201006
  6. ASIMEI [Concomitant]
     Indication: COUGH
     Dosage: TWICE A DAY, ONCE A DAY AND ONE TABLET AT A TIME
     Dates: end: 202009
  7. SYMBICORT [Suspect]
     Active Substance: BUDESONIDE\FORMOTEROL FUMARATE DIHYDRATE
     Indication: ASTHMA
     Dosage: UNKNOWN UNKNOWN
     Route: 055
     Dates: start: 2018

REACTIONS (2)
  - Cardiac disorder [Unknown]
  - Supraventricular tachycardia [Unknown]
